FAERS Safety Report 14256963 (Version 5)
Quarter: 2018Q4

REPORT INFORMATION
  Report Type: Other
  Country: CA (occurrence: CA)
  Receive Date: 20171206
  Receipt Date: 20181210
  Transmission Date: 20190204
  Serious: Yes (Hospitalization)
  Sender: FDA-Public Use
  Company Number: CA-HLSUS-2016-CA-000123

PATIENT
  Age: 71 Year
  Sex: Male
  Weight: 53.07 kg

DRUGS (1)
  1. CLOZARIL [Suspect]
     Active Substance: CLOZAPINE
     Route: 048
     Dates: start: 19950517

REACTIONS (24)
  - Pneumonia [Unknown]
  - Confusional state [None]
  - Dry mouth [None]
  - Confusional state [None]
  - Pneumonia aspiration [Unknown]
  - Hypertonia [None]
  - Vision blurred [None]
  - Diarrhoea [None]
  - Headache [None]
  - Tachycardia [None]
  - Hypotension [None]
  - Hypertonia [None]
  - Hyperhidrosis [None]
  - Hypotension [None]
  - Subileus [Unknown]
  - Asthenia [None]
  - Salivary hypersecretion [None]
  - Cough [None]
  - Lethargy [None]
  - Constipation [None]
  - Asthenia [None]
  - Salivary hypersecretion [None]
  - Weight decreased [None]
  - Enuresis [None]

NARRATIVE: CASE EVENT DATE: 20180709
